FAERS Safety Report 5339719-7 (Version None)
Quarter: 2007Q2

REPORT INFORMATION
  Report Type: 
  Country: None (occurrence: None)
  Receive Date: 20070404
  Receipt Date: 20060913
  Transmission Date: 20071010
  Serious: Yes (Other)
  Sender: FDA-Public Use
  Company Number: 2006110761

PATIENT
  Age: 48 Year

DRUGS (2)
  1. GEODON [Suspect]
  2. GLUCOPHAGE [Concomitant]

REACTIONS (3)
  - DIABETES MELLITUS NON-INSULIN-DEPENDENT [None]
  - IMPRISONMENT [None]
  - WEIGHT INCREASED [None]
